FAERS Safety Report 7630037-0 (Version None)
Quarter: 2011Q3

REPORT INFORMATION
  Report Type: 
  Country: None (occurrence: None)
  Receive Date: 20110722
  Receipt Date: 20110719
  Transmission Date: 20111222
  Serious: Yes (Other)
  Sender: FDA-Public Use
  Company Number: BR-PFIZER INC-2011092850

PATIENT
  Age: 47 Year
  Sex: Female
  Weight: 64 kg

DRUGS (6)
  1. SYNTHROID [Concomitant]
     Indication: THYROID DISORDER
     Dosage: 50 UG, 1X/DAY
     Dates: start: 20060101
  2. VARENICLINE TARTRATE [Suspect]
     Dosage: 1 MG, 2X/DAY
     Route: 048
     Dates: start: 20110101, end: 20110101
  3. AMITRIPTYLINE HCL [Concomitant]
     Indication: TENSION
     Dosage: 37.5 MG, 1X/DAY
     Dates: start: 20010101
  4. OMEPRAZOLE [Concomitant]
     Indication: GASTRITIS
     Dosage: 40 MG, 1X/DAY (NOT EVERY DAY)
     Dates: start: 20100101
  5. VARENICLINE TARTRATE [Suspect]
     Dosage: UNK
     Route: 048
     Dates: start: 20110418
  6. DOMPERIDONE [Concomitant]
     Indication: HIATUS HERNIA
     Dosage: UNK
     Dates: start: 20100101

REACTIONS (1)
  - BLOOD PRESSURE INCREASED [None]
